FAERS Safety Report 24763383 (Version 1)
Quarter: 2024Q4

REPORT INFORMATION
  Report Type: Spontaneous
  Country: CN (occurrence: CN)
  Receive Date: 20241222
  Receipt Date: 20241222
  Transmission Date: 20250115
  Serious: Yes (Other)
  Sender: Haleon PLC
  Company Number: CN-HALEON-2216666

PATIENT
  Age: 15 Year
  Sex: Female

DRUGS (1)
  1. DICLOFENAC SODIUM [Suspect]
     Active Substance: DICLOFENAC SODIUM
     Indication: Analgesic therapy
     Route: 048
     Dates: start: 20241202, end: 20241202

REACTIONS (4)
  - Swelling of eyelid [Recovered/Resolved]
  - Pharyngeal disorder [Recovered/Resolved]
  - Drug hypersensitivity [Recovering/Resolving]
  - Eyelid pain [Recovering/Resolving]

NARRATIVE: CASE EVENT DATE: 20241202
